FAERS Safety Report 15180069 (Version 5)
Quarter: 2021Q2

REPORT INFORMATION
  Report Type: Spontaneous
  Country: US (occurrence: US)
  Receive Date: 20180723
  Receipt Date: 20210618
  Transmission Date: 20210716
  Serious: Yes (Other)
  Sender: FDA-Public Use
  Company Number: US-PFIZER INC-2018294028

PATIENT
  Age: 74 Year
  Sex: Female
  Weight: 78 kg

DRUGS (1)
  1. XELJANZ XR [Suspect]
     Active Substance: TOFACITINIB CITRATE
     Indication: RHEUMATOID ARTHRITIS
     Dosage: 11 MG, DAILY
     Route: 048
     Dates: start: 20180620

REACTIONS (8)
  - Weight increased [Unknown]
  - Cervical vertebral fracture [Unknown]
  - Fatigue [Not Recovered/Not Resolved]
  - Headache [Unknown]
  - Rhinitis allergic [Recovering/Resolving]
  - Back pain [Unknown]
  - Pollakiuria [Unknown]
  - Chapped lips [Unknown]

NARRATIVE: CASE EVENT DATE: 2021
